FAERS Safety Report 9717209 (Version 5)
Quarter: 2013Q4

REPORT INFORMATION
  Report Type: Spontaneous
  Country: US (occurrence: US)
  Receive Date: 20131127
  Receipt Date: 20131219
  Transmission Date: 20140711
  Serious: Yes (Hospitalization, Other)
  Sender: FDA-Public Use
  Company Number: US-JNJFOC-20131114417

PATIENT
  Sex: 0

DRUGS (1)
  1. INFLIXIMAB, RECOMBINANT [Suspect]
     Indication: CROHN^S DISEASE
     Dosage: 10 MG/KG, ONCE IN 7 WEEKS--20 MG/KG, ONCE IN 4 WEEKS
     Route: 042

REACTIONS (2)
  - Squamous cell carcinoma of skin [Unknown]
  - Infection [Unknown]
